FAERS Safety Report 21745372 (Version 2)
Quarter: 2023Q1

REPORT INFORMATION
  Report Type: Spontaneous
  Country: US (occurrence: US)
  Receive Date: 20221219
  Receipt Date: 20230128
  Transmission Date: 20230417
  Serious: No
  Sender: FDA-Public Use
  Company Number: US-drreddys-SPO/USA/22/0158048

PATIENT
  Age: 81 Year
  Sex: Female

DRUGS (14)
  1. LENALIDOMIDE [Suspect]
     Active Substance: LENALIDOMIDE
     Indication: Anaemia
     Dosage: ON DAYS 1-21 OF EACH 28 DAY CYCLE, THEN OFF FOR 7 DAYS
     Route: 048
     Dates: start: 20221018
  2. CALCIUM 600 TAB 600MG [Concomitant]
     Indication: Product used for unknown indication
  3. DEXAMETHASONE [Concomitant]
     Active Substance: DEXAMETHASONE
     Indication: Product used for unknown indication
  4. ESCITALOPRAM [Concomitant]
     Active Substance: ESCITALOPRAM OXALATE
     Indication: Product used for unknown indication
  5. HYDROCODONE- TAB 5- 325MG [Concomitant]
     Indication: Product used for unknown indication
     Dosage: 5- 325MG
  6. LEVOTHYROXIN TAB 100MCG [Concomitant]
     Indication: Product used for unknown indication
  7. OMEPRAZOLE [Concomitant]
     Active Substance: OMEPRAZOLE
     Indication: Product used for unknown indication
  8. SIMVASTATIN [Concomitant]
     Active Substance: SIMVASTATIN
     Indication: Product used for unknown indication
  9. TEMAZEPAM CAP 15MG [Concomitant]
     Indication: Product used for unknown indication
  10. TIZANIDINE HYDROCHLORIDE [Concomitant]
     Active Substance: TIZANIDINE HYDROCHLORIDE
     Indication: Product used for unknown indication
  11. TRULANCE TAB 3MG [Concomitant]
     Indication: Product used for unknown indication
  12. VITAMIN D TAB 25 MCG(1000 [Concomitant]
     Indication: Product used for unknown indication
  13. FUR SEMIDE TAB 20MG [Concomitant]
     Indication: Product used for unknown indication
  14. XARELTO [Concomitant]
     Active Substance: RIVAROXABAN
     Indication: Product used for unknown indication

REACTIONS (5)
  - Oral fungal infection [Unknown]
  - Pain [Unknown]
  - Rash macular [Recovered/Resolved]
  - Drug hypersensitivity [Unknown]
  - Product use in unapproved indication [Unknown]

NARRATIVE: CASE EVENT DATE: 20221018
